FAERS Safety Report 6028806-6 (Version None)
Quarter: 2008Q4

REPORT INFORMATION
  Report Type: 
  Country: None (occurrence: None)
  Receive Date: 20081222
  Receipt Date: 20081021
  Transmission Date: 20090506
  Serious: No
  Sender: FDA-Public Use
  Company Number: ALL1-2008-03065

PATIENT
  Age: 5 Year
  Sex: Female
  Weight: 17.2 kg

DRUGS (4)
  1. VYVANSE [Suspect]
     Indication: ATTENTION DEFICIT/HYPERACTIVITY DISORDER
     Dosage: 20 MG, 1X/DAY;QD, ORAL
     Route: 048
     Dates: start: 20080901
  2. VITAMINS NOS (VITAMINS NOS) [Concomitant]
  3. FISH OIL (FISH OIL) [Concomitant]
  4. MELATONIIN (MELATONIN) [Concomitant]

REACTIONS (4)
  - ANOREXIA [None]
  - OFF LABEL USE [None]
  - REPETITIVE SPEECH [None]
  - WEIGHT DECREASED [None]
